FAERS Safety Report 6147597-1 (Version None)
Quarter: 2009Q2

REPORT INFORMATION
  Report Type: 
  Country: None (occurrence: None)
  Receive Date: 20090406
  Receipt Date: 20090331
  Transmission Date: 20091009
  Serious: Yes (Hospitalization, Other)
  Sender: FDA-Public Use
  Company Number: THQ2008A01640

PATIENT
  Age: 60 Year
  Sex: Female

DRUGS (4)
  1. ACTOS [Suspect]
     Indication: DIABETES MELLITUS
     Dosage: 30 MG (30 MG, 1 IN 1 D) PER ORAL
     Route: 048
     Dates: start: 20080601
  2. GLICLAZIDE [Concomitant]
  3. METFORMIN HCL [Concomitant]
  4. GLUCOBAY [Concomitant]

REACTIONS (2)
  - CEREBRAL INFARCTION [None]
  - CEREBRAL ISCHAEMIA [None]
